FAERS Safety Report 9458823 (Version 1)
Quarter: 2013Q3

REPORT INFORMATION
  Report Type: Report from Study
  Country: LB (occurrence: LB)
  Receive Date: 20130814
  Receipt Date: 20130814
  Transmission Date: 20140515
  Serious: Yes (Disabling)
  Sender: FDA-Public Use
  Company Number: PHHY2013LB087449

PATIENT
  Age: 43 Year
  Sex: Female

DRUGS (2)
  1. ACLASTA [Suspect]
     Indication: OSTEOPOROSIS
     Dosage: 5 MG, UNK
     Route: 042
     Dates: start: 20130726
  2. EURO-D [Concomitant]
     Dosage: 10000 U, ONCE A WEEK
     Route: 048

REACTIONS (4)
  - Abasia [Recovered/Resolved]
  - Bone pain [Recovered/Resolved]
  - Dyspnoea [Recovering/Resolving]
  - Fatigue [Unknown]
